FAERS Safety Report 7495034-7 (Version None)
Quarter: 2011Q2

REPORT INFORMATION
  Report Type: 
  Country: None (occurrence: None)
  Receive Date: 20110520
  Receipt Date: 20110514
  Transmission Date: 20111010
  Serious: Yes (Hospitalization)
  Sender: FDA-Public Use
  Company Number: US-B.I. PHARMACEUTICALS,INC./RIDGEFIELD-2011-BP-13141BP

PATIENT
  Sex: Female

DRUGS (2)
  1. PRADAXA [Suspect]
     Indication: ATRIAL FIBRILLATION
     Dosage: 300 MG
     Route: 048
     Dates: start: 20110201
  2. 5 UNSPECIFIED MEDICATIONS [Concomitant]
     Indication: HEART RATE IRREGULAR

REACTIONS (4)
  - HEADACHE [None]
  - EYE HAEMORRHAGE [None]
  - DIZZINESS [None]
  - MACULAR DEGENERATION [None]
